FAERS Safety Report 6933053-7 (Version None)
Quarter: 2010Q3

REPORT INFORMATION
  Report Type: 
  Country: None (occurrence: None)
  Receive Date: 20100818
  Receipt Date: 20100818
  Transmission Date: 20110219
  Serious: Yes (Life-Threatening, Hospitalization, Other)
  Sender: FDA-Public Use
  Company Number: None

PATIENT
  Age: 71 Year
  Sex: Female
  Weight: 81.9 kg

DRUGS (18)
  1. PIPERACILLIN AND TAZOBACTAM [Suspect]
     Indication: PNEUMONIA
     Dosage: 4.5 GRAMS ONCE INTRAVENOUS INFUSION
     Dates: start: 20100309
  2. SULFAMETHOXAZOLE AND TRIMETHOPRIM [Concomitant]
  3. MYCOPHENOLATE MOFETIL [Concomitant]
  4. PREDNISONE [Concomitant]
  5. CHOLECALCIFEROL [Concomitant]
  6. TRAZODONE HCL [Concomitant]
  7. SENNOSIDES [Concomitant]
  8. ROSUVASTATIN [Concomitant]
  9. HYDROCODONE BITARTRATE AND ACETAMINOPHEN [Concomitant]
  10. FERROUS GLUCONATE [Concomitant]
  11. DOCUSATE SODIUM [Concomitant]
  12. PREGABLIN [Concomitant]
  13. ATENOLOL [Concomitant]
  14. LEVOTHYROXINE SODIUM [Concomitant]
  15. AMITRIPTYLINE HCL [Concomitant]
  16. ASPIRIN [Concomitant]
  17. ZOLPIDEM [Concomitant]
  18. CLOPIDOGREL [Concomitant]

REACTIONS (4)
  - DYSPNOEA [None]
  - GENERALISED ERYTHEMA [None]
  - HEART RATE INCREASED [None]
  - HYPOTENSION [None]
